FAERS Safety Report 12656088 (Version 1)
Quarter: 2016Q3

REPORT INFORMATION
  Report Type: Report from Study
  Country: JP (occurrence: JP)
  Receive Date: 20160816
  Receipt Date: 20160816
  Transmission Date: 20161109
  Serious: Yes (Hospitalization)
  Sender: FDA-Public Use
  Company Number: JP-ASTRAZENECA-2016SE87329

PATIENT
  Age: 86 Year
  Sex: Female
  Weight: 36 kg

DRUGS (7)
  1. ARICEPT [Concomitant]
     Active Substance: DONEPEZIL HYDROCHLORIDE
     Indication: DEMENTIA ALZHEIMER^S TYPE
     Dosage: NUMBER OF SEPARATE DOSAGES UNKNOWN
     Route: 048
  2. NEXIUM [Suspect]
     Active Substance: ESOMEPRAZOLE MAGNESIUM
     Indication: PROPHYLAXIS AGAINST GASTROINTESTINAL ULCER
     Route: 048
     Dates: start: 20140208, end: 20141121
  3. BAYASPIRIN [Concomitant]
     Active Substance: ASPIRIN
     Indication: CEREBRAL INFARCTION
     Dosage: NUMBER OF SEPARATE DOSAGES UNKNOWN100.0MG UNKNOWN
  4. DIOVAN [Concomitant]
     Active Substance: VALSARTAN
     Indication: HYPERTENSION
     Dosage: NUMBER OF SEPARATE DOSAGES UNKNOWN
     Route: 048
  5. CEROCRAL [Concomitant]
     Active Substance: IFENPRODIL
     Indication: CEREBRAL INFARCTION
     Dosage: NUMBER OF SEPARATE DOSAGES UNKNOWN
     Route: 048
  6. ROZEREM [Concomitant]
     Active Substance: RAMELTEON
     Indication: DEMENTIA ALZHEIMER^S TYPE
     Dosage: NUMBER OF SEPARATE DOSAGES UNKNOWN
     Route: 048
  7. CALBLOCK [Concomitant]
     Active Substance: AZELNIDIPINE
     Indication: HYPERTENSION
     Dosage: NUMBER OF SEPARATE DOSAGES UNKNOWN
     Route: 048

REACTIONS (1)
  - Dementia Alzheimer^s type [Not Recovered/Not Resolved]

NARRATIVE: CASE EVENT DATE: 20141221
